FAERS Safety Report 13201604 (Version 1)
Quarter: 2017Q1

REPORT INFORMATION
  Report Type: Spontaneous
  Country: US (occurrence: US)
  Receive Date: 20170208
  Receipt Date: 20170208
  Transmission Date: 20170428
  Serious: No
  Sender: FDA-Public Use
  Company Number: US-AEGERION PHARMACEUTICAL INC.-AEGR002913

PATIENT
  Sex: Female
  Weight: 78.46 kg

DRUGS (1)
  1. MYALEPT [Suspect]
     Active Substance: METRELEPTIN
     Indication: CONGENITAL GENERALISED LIPODYSTROPHY
     Dosage: 10 MG, QD
     Route: 058
     Dates: start: 201511

REACTIONS (4)
  - Viral infection [Recovering/Resolving]
  - Back disorder [Unknown]
  - Pituitary-dependent Cushing^s syndrome [Unknown]
  - Blood glucose increased [Recovering/Resolving]

NARRATIVE: CASE EVENT DATE: 2016
